APPROVED DRUG PRODUCT: ACETAMINOPHEN AND CODEINE PHOSPHATE
Active Ingredient: ACETAMINOPHEN; CODEINE PHOSPHATE
Strength: 120MG/5ML;12MG/5ML
Dosage Form/Route: SOLUTION;ORAL
Application: A040119 | Product #001
Applicant: PAI HOLDINGS LLC DBA PHARMACEUTICAL ASSOCIATES INC AND DBA PAI PHARMA
Approved: Apr 26, 1996 | RLD: No | RS: No | Type: DISCN